FAERS Safety Report 12868542 (Version 1)
Quarter: 2016Q4

REPORT INFORMATION
  Report Type: Report from Study
  Country: CA (occurrence: CA)
  Receive Date: 20161020
  Receipt Date: 20161020
  Transmission Date: 20170207
  Serious: Yes (Other)
  Sender: FDA-Public Use
  Company Number: CA-JNJFOC-20161012279

PATIENT
  Age: 13 Year
  Sex: Female
  Weight: 49.7 kg

DRUGS (2)
  1. REMICADE [Suspect]
     Active Substance: INFLIXIMAB
     Indication: COLITIS ULCERATIVE
     Route: 042
     Dates: start: 20161012
  2. REMICADE [Suspect]
     Active Substance: INFLIXIMAB
     Indication: COLITIS ULCERATIVE
     Route: 042
     Dates: start: 20160510

REACTIONS (9)
  - Off label use [Unknown]
  - Dyspnoea [Recovered/Resolved]
  - Chest discomfort [Recovered/Resolved]
  - Abdominal pain [Recovered/Resolved]
  - Flushing [Recovered/Resolved]
  - Infusion related reaction [Recovered/Resolved]
  - Product use issue [Unknown]
  - Vomiting [Recovered/Resolved]
  - Oxygen saturation decreased [Recovered/Resolved]

NARRATIVE: CASE EVENT DATE: 20160510
